FAERS Safety Report 6293125-X (Version None)
Quarter: 2009Q3

REPORT INFORMATION
  Report Type: 
  Country: None (occurrence: None)
  Receive Date: 20090729
  Receipt Date: 20090720
  Transmission Date: 20100115
  Serious: Yes (Hospitalization, Disabling, Other)
  Sender: FDA-Public Use
  Company Number: ADR9932009

PATIENT
  Age: 68 Year
  Sex: Male

DRUGS (15)
  1. AMLODIPINE [Suspect]
  2. AVANDIA [Concomitant]
  3. AMITRIPTYLINE HCL [Concomitant]
  4. ASPIRIN [Concomitant]
  5. BISOPROLOL [Concomitant]
  6. CANDESARTAN CILEXETIL [Concomitant]
  7. CLOPIDOGREL [Concomitant]
  8. FLUOXETINE [Concomitant]
  9. FRUSEMIDE [Concomitant]
  10. ISMN [Concomitant]
  11. METFORMIN [Concomitant]
  12. NAPROXEN [Concomitant]
  13. OMEPRAZOLE [Concomitant]
  14. SIMVASTATIN [Concomitant]
  15. ZOPICLONE [Concomitant]

REACTIONS (7)
  - ANGINA PECTORIS [None]
  - BRAIN NATRIURETIC PEPTIDE INCREASED [None]
  - CARDIAC FAILURE [None]
  - CORONARY ARTERY DISEASE [None]
  - HYPERHIDROSIS [None]
  - NECK PAIN [None]
  - PAIN [None]
